FAERS Safety Report 17590088 (Version 1)
Quarter: 2020Q1

REPORT INFORMATION
  Report Type: Report from Study
  Country: IT (occurrence: IT)
  Receive Date: 20200327
  Receipt Date: 20200327
  Transmission Date: 20200409
  Serious: Yes (Other)
  Sender: FDA-Public Use
  Company Number: IT-ACCORD-170080

PATIENT
  Age: 75 Year
  Sex: Female
  Weight: 0 kg

DRUGS (5)
  1. ONDANSETRON B. BRAUN [Concomitant]
  2. ENDOXAN BAXTER [Suspect]
     Active Substance: CYCLOPHOSPHAMIDE
     Indication: BREAST CANCER
     Dosage: STRENGTH: 1 G
     Route: 042
     Dates: start: 20190611
  3. DECADRON [Concomitant]
     Active Substance: DEXAMETHASONE
  4. EPIRUBICIN AHCL [Suspect]
     Active Substance: EPIRUBICIN
     Indication: BREAST CANCER
     Route: 042
     Dates: start: 20190611
  5. FLUOROURACIL AHCL [Suspect]
     Active Substance: FLUOROURACIL
     Indication: BREAST CANCER
     Route: 042
     Dates: start: 20190611

REACTIONS (8)
  - Constipation [Unknown]
  - Hot flush [Unknown]
  - Nausea [Unknown]
  - Foot deformity [Unknown]
  - Insomnia [Unknown]
  - Alopecia [Unknown]
  - Onychoclasis [Unknown]
  - Neutropenia [Unknown]

NARRATIVE: CASE EVENT DATE: 20190714
